FAERS Safety Report 10543399 (Version 2)
Quarter: 2014Q4

REPORT INFORMATION
  Report Type: Spontaneous
  Country: US (occurrence: None)
  Receive Date: 20141010
  Receipt Date: 20141205
  Transmission Date: 20150529
  Serious: Yes (Other)
  Sender: FDA-Public Use
  Company Number: 163-POMAL-14080958

PATIENT
  Age: 61 Year
  Sex: Male

DRUGS (20)
  1. DEXAMETHASONE. [Suspect]
     Active Substance: DEXAMETHASONE
     Indication: PLASMA CELL MYELOMA
     Dates: start: 20140418
  2. POTASSIUM CHLORIDE. [Concomitant]
     Active Substance: POTASSIUM CHLORIDE
  3. PROCHLORPERAZINE. [Concomitant]
     Active Substance: PROCHLORPERAZINE
  4. ACYCLOVIR(ACICLOVIR) [Concomitant]
  5. FOLIC ACID(FOLIC ACID) [Concomitant]
  6. CYCLOPHOSPHAMIDE. [Suspect]
     Active Substance: CYCLOPHOSPHAMIDE
     Indication: PLASMA CELL MYELOMA
     Dosage: 300 MG/M2, 3 IN 28 D, IV
     Route: 042
     Dates: start: 201405
  7. ZOFRAN(ONDASETRON HYDROCHLORIDE) [Concomitant]
  8. COLACE(DOCUSATE SODIUM)(CAPSULES) [Concomitant]
  9. METHOCARBAMOL. [Concomitant]
     Active Substance: METHOCARBAMOL
  10. MORPHINE(MORPHINE)(SUSTAINED-RELEASE TABLET) [Concomitant]
  11. POMALYST [Suspect]
     Active Substance: POMALIDOMIDE
     Indication: PLASMA CELL MYELOMA
     Dosage: 2 MG, 21 IN 21 D, PO
     Route: 048
     Dates: start: 20140603
  12. ASPIRIN(ACETYLSALICYLIC ACID)(ENTERFIC-COATED TABLET) [Concomitant]
  13. NEURONTIN(GABAPENTIN(CAPSULES) [Concomitant]
  14. MARINOL(DRONABINOL) [Concomitant]
  15. OXYCODONE [Concomitant]
     Active Substance: OXYCODONE
  16. SPIRIVA(TIOTROPIUM BROMIDE) [Concomitant]
  17. ALLOPURINOL. [Concomitant]
     Active Substance: ALLOPURINOL
  18. NEXIUM(ESOMEPRAZOLE) [Concomitant]
  19. ADVAIR(SERETIDE MITE) [Concomitant]
  20. PACKED RED BLOOD CELLS (BLOOD CELLS, PACKED HUMAN)(INJECTION) [Concomitant]

REACTIONS (4)
  - White blood cell count decreased [None]
  - Haematocrit decreased [None]
  - Neutrophil count decreased [None]
  - Haemoglobin decreased [None]

NARRATIVE: CASE EVENT DATE: 201406
